FAERS Safety Report 5958202-9 (Version None)
Quarter: 2008Q4

REPORT INFORMATION
  Report Type: 
  Country: None (occurrence: None)
  Receive Date: 20081117
  Receipt Date: 20081117
  Transmission Date: 20090506
  Serious: No
  Sender: FDA-Public Use
  Company Number: None

PATIENT
  Sex: Female
  Weight: 59.8748 kg

DRUGS (2)
  1. WAL-TUSSIN CHEST CONGESTION ORAL SOLUTION WALGREENS [Suspect]
     Indication: LOWER RESPIRATORY TRACT INFECTION
     Dosage: 2-4 TSP EVERY 4 HOURS PO
     Route: 048
     Dates: start: 20081111, end: 20081112
  2. WAL-TUSSIN CHEST CONGESTION ORAL SOLUTION WALGREENS [Suspect]
     Indication: RESPIRATORY TRACT CONGESTION
     Dosage: 2-4 TSP EVERY 4 HOURS PO
     Route: 048
     Dates: start: 20081111, end: 20081112

REACTIONS (3)
  - DIZZINESS [None]
  - DRUG EFFECT DECREASED [None]
  - DYSPNOEA [None]
